FAERS Safety Report 8305973-2 (Version None)
Quarter: 2012Q2

REPORT INFORMATION
  Report Type: 
  Country: None (occurrence: None)
  Receive Date: 20120423
  Receipt Date: 20120412
  Transmission Date: 20120825
  Serious: Yes (Hospitalization)
  Sender: FDA-Public Use
  Company Number: AT-ROCHE-1059055

PATIENT
  Age: 55 Year
  Sex: Female
  Weight: 90 kg

DRUGS (6)
  1. PEGASYS [Suspect]
     Indication: HEPATITIS C
     Dates: start: 20120302, end: 20120316
  2. COPEGUS [Suspect]
     Indication: HEPATITIS C
     Dates: start: 20120302, end: 20120316
  3. BONIVA [Concomitant]
  4. INCIVO [Suspect]
     Indication: HEPATITIS C
     Dates: start: 20120302, end: 20120316
  5. RAMIPRIL [Concomitant]
     Dosage: REPORTER AS RAMICOMP
  6. CARVEDILOL [Concomitant]
     Dates: end: 20120309

REACTIONS (4)
  - NEPHRITIS [None]
  - PANCREATITIS [None]
  - PANCYTOPENIA [None]
  - RENAL FAILURE ACUTE [None]
